FAERS Safety Report 7156052-1 (Version None)
Quarter: 2010Q4

REPORT INFORMATION
  Report Type: 
  Country: None (occurrence: None)
  Receive Date: 20101123
  Receipt Date: 20091130
  Transmission Date: 20110411
  Serious: Yes (Other)
  Sender: FDA-Public Use
  Company Number: 8054985

PATIENT
  Sex: Female

DRUGS (1)
  1. CERTOLIZUMAB PEGOL [Suspect]
     Dosage: (400 MG, DOSE FREQ.: ONCE MONTHLY SUBCUTANEOUS)
     Route: 058
     Dates: start: 20090304

REACTIONS (3)
  - ABDOMINAL DISCOMFORT [None]
  - INJECTION SITE PAIN [None]
  - STAPHYLOCOCCAL INFECTION [None]
